FAERS Safety Report 25341341 (Version 1)
Quarter: 2025Q2

REPORT INFORMATION
  Report Type: Report from Study
  Country: FR (occurrence: FR)
  Receive Date: 20250521
  Receipt Date: 20250521
  Transmission Date: 20250717
  Serious: Yes (Other)
  Sender: MYLAN
  Company Number: FR-MYLANLABS-2025M1042539

PATIENT

DRUGS (18)
  1. EMTRICITABINE\TENOFOVIR DISOPROXIL [Suspect]
     Active Substance: EMTRICITABINE\TENOFOVIR DISOPROXIL
     Indication: HIV-2 infection
     Dosage: UNK, QD
  2. EMTRICITABINE\TENOFOVIR DISOPROXIL [Suspect]
     Active Substance: EMTRICITABINE\TENOFOVIR DISOPROXIL
     Indication: Multiple-drug resistance
  3. LAMIVUDINE\ZIDOVUDINE [Suspect]
     Active Substance: LAMIVUDINE\ZIDOVUDINE
     Indication: HIV-2 infection
     Dosage: UNK, BID
  4. LAMIVUDINE\ZIDOVUDINE [Suspect]
     Active Substance: LAMIVUDINE\ZIDOVUDINE
     Indication: Multiple-drug resistance
  5. LOPINAVIR\RITONAVIR [Suspect]
     Active Substance: LOPINAVIR\RITONAVIR
     Indication: HIV-2 infection
     Dosage: UNK, BID
  6. LOPINAVIR\RITONAVIR [Suspect]
     Active Substance: LOPINAVIR\RITONAVIR
     Indication: Multiple-drug resistance
  7. RITONAVIR [Suspect]
     Active Substance: RITONAVIR
     Indication: HIV-2 infection
     Dosage: 100 MILLIGRAM, BID
  8. RITONAVIR [Suspect]
     Active Substance: RITONAVIR
     Indication: Multiple-drug resistance
  9. ATAZANAVIR [Suspect]
     Active Substance: ATAZANAVIR
     Indication: HIV-2 infection
     Dosage: 150 MILLIGRAM, QD
  10. ATAZANAVIR [Suspect]
     Active Substance: ATAZANAVIR
     Indication: Multiple-drug resistance
  11. SAQUINAVIR [Suspect]
     Active Substance: SAQUINAVIR
     Indication: HIV-2 infection
     Dosage: 500 MILLIGRAM, BID
  12. SAQUINAVIR [Suspect]
     Active Substance: SAQUINAVIR
     Indication: Multiple-drug resistance
  13. FOSCARNET [Suspect]
     Active Substance: FOSCARNET
     Indication: HIV-2 infection
  14. FOSCARNET [Suspect]
     Active Substance: FOSCARNET
     Indication: Multiple-drug resistance
  15. DOLUTEGRAVIR [Suspect]
     Active Substance: DOLUTEGRAVIR
     Indication: HIV-2 infection
     Dosage: 50 MILLIGRAM, BID
  16. DOLUTEGRAVIR [Suspect]
     Active Substance: DOLUTEGRAVIR
     Indication: Multiple-drug resistance
  17. IBALIZUMAB [Suspect]
     Active Substance: IBALIZUMAB
     Indication: HIV-2 infection
  18. IBALIZUMAB [Suspect]
     Active Substance: IBALIZUMAB
     Indication: Multiple-drug resistance
     Dosage: 800 MILLIGRAM, BIWEEKLY

REACTIONS (1)
  - Drug ineffective [Unknown]
